FAERS Safety Report 5869490-1 (Version None)
Quarter: 2008Q3

REPORT INFORMATION
  Report Type: 
  Country: None (occurrence: None)
  Receive Date: 20080829
  Receipt Date: 20080819
  Transmission Date: 20090109
  Serious: Yes (Other)
  Sender: FDA-Public Use
  Company Number: 237860J08USA

PATIENT
  Age: 48 Year
  Sex: Male
  Weight: 92.9874 kg

DRUGS (3)
  1. REBIF [Suspect]
     Indication: MULTIPLE SCLEROSIS
     Dosage: 44 MCG, 3 IN 1 WEEKS, SUBCUTANEOUS
     Route: 058
     Dates: start: 20070118
  2. BABY ASPIRIN (ACETYLSALICYLLIC ACID) [Concomitant]
  3. TIZANIDINE HCL [Concomitant]

REACTIONS (6)
  - BURSITIS [None]
  - CARTILAGE INJURY [None]
  - EXOSTOSIS [None]
  - INCISION SITE INFECTION [None]
  - INJURY [None]
  - ROTATOR CUFF SYNDROME [None]
